FAERS Safety Report 7528838-2 (Version None)
Quarter: 2011Q2

REPORT INFORMATION
  Report Type: 
  Country: None (occurrence: None)
  Receive Date: 20110607
  Receipt Date: 20100810
  Transmission Date: 20111010
  Serious: No
  Sender: FDA-Public Use
  Company Number: US-ASTRAZENECA-2010SE38169

PATIENT
  Sex: Female

DRUGS (2)
  1. NOT SPECIFIED [Concomitant]
  2. PRILOSEC OTC [Suspect]
     Dosage: UNKNOWN
     Route: 048

REACTIONS (3)
  - LETHARGY [None]
  - FATIGUE [None]
  - SOMNOLENCE [None]
